FAERS Safety Report 17864650 (Version 1)
Quarter: 2020Q2

REPORT INFORMATION
  Report Type: Spontaneous
  Country: US (occurrence: US)
  Receive Date: 20200604
  Receipt Date: 20200604
  Transmission Date: 20200714
  Serious: No
  Sender: FDA-Public Use
  Company Number: None

PATIENT
  Age: 88 Year
  Sex: Female

DRUGS (1)
  1. KISQALI [Suspect]
     Active Substance: RIBOCICLIB
     Route: 048
     Dates: start: 20200410

REACTIONS (4)
  - Insomnia [None]
  - Fatigue [None]
  - Pruritus [None]
  - Constipation [None]

NARRATIVE: CASE EVENT DATE: 20200601
